FAERS Safety Report 12192877 (Version 1)
Quarter: 2016Q1

REPORT INFORMATION
  Report Type: Other
  Country: SE (occurrence: SE)
  Receive Date: 20160318
  Receipt Date: 20160318
  Transmission Date: 20160526
  Serious: Yes (Death, Hospitalization, Other)
  Sender: FDA-Public Use
  Company Number: SE-SEATTLE GENETICS-2014MPI01687

PATIENT

DRUGS (3)
  1. ADCETRIS [Suspect]
     Active Substance: BRENTUXIMAB VEDOTIN
     Indication: HODGKIN^S DISEASE
  2. ADCETRIS [Suspect]
     Active Substance: BRENTUXIMAB VEDOTIN
     Indication: HODGKIN^S DISEASE
     Dosage: 80 MG, UNK
     Route: 042
     Dates: start: 20141107, end: 20141107
  3. PREDNISOLONE. [Concomitant]
     Active Substance: PREDNISOLONE
     Dates: start: 20141021

REACTIONS (4)
  - Paraesthesia [Recovered/Resolved]
  - Hodgkin^s disease [Fatal]
  - Polyneuropathy [Recovered/Resolved]
  - Paraparesis [Recovered/Resolved]

NARRATIVE: CASE EVENT DATE: 20141107
